FAERS Safety Report 5047773-5 (Version None)
Quarter: 2006Q3

REPORT INFORMATION
  Report Type: 
  Country: None (occurrence: None)
  Receive Date: 20060710
  Receipt Date: 20060710
  Transmission Date: 20061208
  Serious: No
  Sender: FDA-Public Use
  Company Number: None

PATIENT
  Age: 65 Year
  Sex: Female
  Weight: 75 kg

DRUGS (2)
  1. LENALIDOMIDE 10 MG CELGENE [Suspect]
     Indication: MYELODYSPLASTIC SYNDROME
     Dosage: 10 MG QDX 21DAYS Q 28 DAYS PO
     Route: 048
     Dates: start: 20060220, end: 20060323
  2. LENALIDOMIDE 5 MG CELGENE [Suspect]
     Indication: MYELODYSPLASTIC SYNDROME
     Dosage: 5 MG QD 21 DAYS , Q28 DAYS PO
     Route: 048
     Dates: start: 20060407, end: 20060707

REACTIONS (1)
  - NEUTROPENIA [None]
